FAERS Safety Report 5957118-1 (Version None)
Quarter: 2008Q4

REPORT INFORMATION
  Report Type: 
  Country: None (occurrence: None)
  Receive Date: 20081117
  Receipt Date: 20081117
  Transmission Date: 20090506
  Serious: Yes (Other)
  Sender: FDA-Public Use
  Company Number: None

PATIENT
  Age: 50 Year
  Sex: Male
  Weight: 55.7924 kg

DRUGS (2)
  1. TYGACIL [Suspect]
     Dosage: 75 MG DAILY IV
     Route: 042
     Dates: start: 20081021, end: 20081104
  2. TYGACIL [Suspect]
     Dosage: 50 MG DAILY IV
     Route: 042
     Dates: start: 20081104, end: 20081106

REACTIONS (1)
  - BLOOD BILIRUBIN INCREASED [None]
